FAERS Safety Report 8711777 (Version 2)
Quarter: 2012Q4

REPORT INFORMATION
  Report Type: 
  Country: US (occurrence: US)
  Receive Date: 20120807
  Receipt Date: 20120905
  Transmission Date: 20130627
  Serious: Yes (Hospitalization)
  Sender: FDA-Public Use
  Company Number: US-BAXTER-2012BAX011212

PATIENT
  Age: 76 None
  Sex: Male

DRUGS (3)
  1. DIANEAL LOW CALCIUM [Suspect]
     Indication: PERITONEAL DIALYSIS
     Route: 033
     Dates: end: 20120706
  2. DIANEAL [Suspect]
     Indication: PERITONEAL DIALYSIS
     Route: 033
     Dates: end: 20120706
  3. DIANEAL LOW CALCIUM ULTRABAG [Suspect]
     Indication: PERITONEAL DIALYSIS
     Route: 033
     Dates: start: 20120820

REACTIONS (2)
  - Gallbladder disorder [Recovered/Resolved]
  - Nausea [Recovering/Resolving]
